FAERS Safety Report 7285091-5 (Version None)
Quarter: 2011Q1

REPORT INFORMATION
  Report Type: 
  Country: None (occurrence: None)
  Receive Date: 20110210
  Receipt Date: 20110128
  Transmission Date: 20110831
  Serious: Yes (Hospitalization, Other)
  Sender: FDA-Public Use
  Company Number: PHHY2010JP85842

PATIENT
  Sex: Male
  Weight: 65 kg

DRUGS (10)
  1. ETOPOSIDE [Concomitant]
     Indication: BONE MARROW TRANSPLANT
     Dosage: UNK
  2. METHYLPREDNISOLONE [Concomitant]
     Indication: BONE MARROW TRANSPLANT
     Dosage: 1MG/KG/DAY
  3. NEORAL [Concomitant]
     Dosage: 250 MG, UNK
     Route: 048
  4. NEORAL [Concomitant]
     Dosage: 300 MG, UNK
     Route: 048
  5. ANTIBIOTICS [Concomitant]
  6. PREDNISOLONE [Concomitant]
     Indication: BONE MARROW TRANSPLANT
     Dosage: UNK
  7. NEORAL [Concomitant]
     Indication: BONE MARROW TRANSPLANT
     Dosage: 200 MG, UNK
     Route: 048
     Dates: start: 20100510
  8. SANDIMMUNE [Suspect]
     Indication: BONE MARROW TRANSPLANT
     Dosage: 180 MG, UNK
     Route: 041
     Dates: start: 20100413, end: 20100426
  9. CYCLOPHOSPHAMIDE [Concomitant]
     Indication: BONE MARROW TRANSPLANT
     Dosage: UNK
  10. NEORAL [Concomitant]
     Dosage: 150 MG, UNK
     Route: 048

REACTIONS (14)
  - BLOOD UREA INCREASED [None]
  - CAPILLARY LEAK SYNDROME [None]
  - RENAL IMPAIRMENT [None]
  - OLIGURIA [None]
  - ACUTE GRAFT VERSUS HOST DISEASE [None]
  - IMMUNOSUPPRESSANT DRUG LEVEL INCREASED [None]
  - PYREXIA [None]
  - ENGRAFTMENT SYNDROME [None]
  - HUMAN HERPESVIRUS 6 INFECTION [None]
  - URINE OUTPUT DECREASED [None]
  - BACTERIAL INFECTION [None]
  - SKIN DISORDER [None]
  - TOXIC ENCEPHALOPATHY [None]
  - BLOOD CREATININE INCREASED [None]
